FAERS Safety Report 6981784-5 (Version None)
Quarter: 2010Q3

REPORT INFORMATION
  Report Type: 
  Country: None (occurrence: None)
  Receive Date: 20100914
  Receipt Date: 20091102
  Transmission Date: 20110219
  Serious: No
  Sender: FDA-Public Use
  Company Number: US-PFIZER INC-2009269800

PATIENT
  Sex: Female
  Weight: 74.8 kg

DRUGS (1)
  1. LYRICA [Suspect]
     Indication: MYALGIA
     Dosage: 50 MG, 3X/DAY
     Route: 048
     Dates: start: 20090901

REACTIONS (1)
  - CHEST PAIN [None]
